FAERS Safety Report 16916807 (Version 2)
Quarter: 2019Q4

REPORT INFORMATION
  Report Type: Spontaneous
  Country: FR (occurrence: FR)
  Receive Date: 20191015
  Receipt Date: 20191021
  Transmission Date: 20200122
  Serious: Yes (Other)
  Sender: FDA-Public Use
  Company Number: FR-US-PROVELL PHARMACEUTICALS LLC-E2B_90069196

PATIENT
  Age: 65 Year
  Sex: Female
  Weight: 87 kg

DRUGS (2)
  1. LEVOTHYROX NF [Suspect]
     Active Substance: LEVOTHYROXINE SODIUM
     Indication: THYROIDECTOMY
     Dosage: 125 (UNSPECIFIED UNITS)
     Dates: start: 201705, end: 201705
  2. LEVOTHYROX NF [Suspect]
     Active Substance: LEVOTHYROXINE SODIUM
     Dosage: 137.5 MCG DAILY IN THE WEEK AND 150 (UNSPECIFIED UNITS) IN THE WEEKEND
     Route: 048
     Dates: start: 201705, end: 20190410

REACTIONS (3)
  - Blood thyroid stimulating hormone increased [Recovered/Resolved]
  - Cerebellar atrophy [Recovered/Resolved]
  - Cerebellar syndrome [Recovered/Resolved]

NARRATIVE: CASE EVENT DATE: 201706
